FAERS Safety Report 17302257 (Version 1)
Quarter: 2020Q1

REPORT INFORMATION
  Report Type: Spontaneous
  Country: CA (occurrence: CA)
  Receive Date: 20200122
  Receipt Date: 20200122
  Transmission Date: 20200409
  Serious: Yes (Other)
  Sender: FDA-Public Use
  Company Number: CA-SA-2020SA014160

PATIENT
  Age: 39 Year
  Sex: Female

DRUGS (7)
  1. METHOTREXATE. [Suspect]
     Active Substance: METHOTREXATE
     Indication: RHEUMATOID ARTHRITIS
     Dosage: 25 MG
     Route: 058
  2. LEFLUNOMIDE. [Suspect]
     Active Substance: LEFLUNOMIDE
     Indication: RHEUMATOID ARTHRITIS
     Dosage: 20 MG, QD
     Route: 048
  3. METHOTREXATE. [Suspect]
     Active Substance: METHOTREXATE
     Dosage: UNK
     Route: 065
  4. LEFLUNOMIDE. [Suspect]
     Active Substance: LEFLUNOMIDE
     Dosage: 20 MG, QOD
     Route: 065
  5. LEFLUNOMIDE. [Suspect]
     Active Substance: LEFLUNOMIDE
     Dosage: 20 MG, QD
     Route: 065
  6. HYDROXYCHLOROQUINE SULFATE. [Suspect]
     Active Substance: HYDROXYCHLOROQUINE SULFATE
     Indication: RHEUMATOID ARTHRITIS
     Dosage: 15 MG, QW
     Route: 058
  7. HYDROXYCHLOROQUINE SULFATE. [Suspect]
     Active Substance: HYDROXYCHLOROQUINE SULFATE
     Dosage: 300 MG, QD
     Route: 065

REACTIONS (3)
  - Arthralgia [Unknown]
  - Diarrhoea [Unknown]
  - Alopecia areata [Unknown]
